FAERS Safety Report 23040920 (Version 3)
Quarter: 2023Q4

REPORT INFORMATION
  Report Type: Spontaneous
  Country: GR (occurrence: GR)
  Receive Date: 20231006
  Receipt Date: 20231030
  Transmission Date: 20240110
  Serious: Yes (Life-Threatening, Other)
  Sender: FDA-Public Use
  Company Number: GR-AstraZeneca-2023A223829

PATIENT
  Age: 53 Year
  Sex: Female
  Weight: 95 kg

DRUGS (7)
  1. TRASTUZUMAB DERUXTECAN [Suspect]
     Active Substance: TRASTUZUMAB DERUXTECAN
     Indication: Breast cancer female
     Dosage: 513 MG, ONCE EVERY 3 WK
     Route: 042
     Dates: start: 20230817, end: 20230817
  2. TRASTUZUMAB DERUXTECAN [Suspect]
     Active Substance: TRASTUZUMAB DERUXTECAN
     Dosage: UNK UNK, ONCE EVERY 3 WK
     Route: 042
     Dates: start: 20230828
  3. TRASTUZUMAB DERUXTECAN [Suspect]
     Active Substance: TRASTUZUMAB DERUXTECAN
     Dosage: UNK UNK, ONCE EVERY 3 WK
     Route: 042
     Dates: start: 20230919
  4. NETUPITANT\PALONOSETRON HYDROCHLORIDE [Concomitant]
     Active Substance: NETUPITANT\PALONOSETRON HYDROCHLORIDE
     Indication: Prophylaxis of nausea and vomiting
     Dosage: UNK
     Route: 065
  5. DEXAMETHASONE SODIUM PHOSPHATE [Concomitant]
     Active Substance: DEXAMETHASONE SODIUM PHOSPHATE
     Indication: Gastrointestinal disorder prophylaxis
     Dosage: UNK
     Route: 042
  6. DIMETHINDENE [Concomitant]
     Active Substance: DIMETHINDENE
     Indication: Antiallergic therapy
     Dosage: UNK
     Route: 042
  7. CIMETIDINE [CIMETIDINE HYDROCHLORIDE] [Concomitant]
     Indication: Antiallergic therapy
     Dosage: UNK
     Route: 042

REACTIONS (3)
  - Wheezing [Recovered/Resolved]
  - Musculoskeletal discomfort [Recovered/Resolved]
  - Swelling [Recovered/Resolved]

NARRATIVE: CASE EVENT DATE: 20230817
